FAERS Safety Report 9869899 (Version 2)
Quarter: 2014Q4

REPORT INFORMATION
  Report Type: Spontaneous
  Country: IT (occurrence: None)
  Receive Date: 20140203
  Receipt Date: 20141224
  Transmission Date: 20150529
  Serious: Yes (Other)
  Sender: FDA-Public Use
  Company Number: KAD201401-000117

PATIENT
  Age: 57 Year
  Sex: Male
  Weight: 77 kg

DRUGS (5)
  1. RIBAVIRIN. [Suspect]
     Active Substance: RIBAVIRIN
     Indication: CHRONIC HEPATITIS C
     Route: 048
     Dates: start: 20131107
  2. BMS 914143 [Suspect]
     Active Substance: PEGINTERFERON LAMBDA-1A
     Indication: CHRONIC HEPATITIS C
     Dosage: ONCE
     Dates: start: 20131107
  3. TELAPREVIR (TELAPREVIR) [Suspect]
     Active Substance: TELAPREVIR
     Indication: CHRONIC HEPATITIS C
     Dosage: ONCE
     Route: 048
     Dates: start: 20131107, end: 20131223
  4. PEGINTERFERON ALFA-2A [Suspect]
     Active Substance: PEGINTERFERON ALFA-2A
     Indication: CHRONIC HEPATITIS C
     Dates: start: 20131107
  5. PLACEBO [Suspect]
     Active Substance: UNSPECIFIED INGREDIENT
     Indication: CHRONIC HEPATITIS C
     Dates: start: 20131107

REACTIONS (4)
  - Hepatotoxicity [None]
  - Platelet count decreased [None]
  - White blood cell count decreased [None]
  - Prothrombin level decreased [None]

NARRATIVE: CASE EVENT DATE: 20131216
